FAERS Safety Report 12943546 (Version 1)
Quarter: 2016Q4

REPORT INFORMATION
  Report Type: Spontaneous
  Country: US (occurrence: US)
  Receive Date: 20161115
  Receipt Date: 20161115
  Transmission Date: 20170207
  Serious: No
  Sender: FDA-Public Use
  Company Number: US-ROCHE-1677813

PATIENT
  Sex: Female

DRUGS (1)
  1. TAMIFLU [Suspect]
     Active Substance: OSELTAMIVIR PHOSPHATE
     Indication: PRODUCT USED FOR UNKNOWN INDICATION
     Dosage: THREE DOSES TAKEN.
     Route: 065
     Dates: start: 2015

REACTIONS (4)
  - Urticaria [Unknown]
  - Rash generalised [Unknown]
  - Malaise [Not Recovered/Not Resolved]
  - Inflammation [Unknown]
